FAERS Safety Report 6487379-4 (Version None)
Quarter: 2009Q4

REPORT INFORMATION
  Report Type: 
  Country: None (occurrence: None)
  Receive Date: 20091210
  Receipt Date: 20091203
  Transmission Date: 20100525
  Serious: Yes (Other)
  Sender: FDA-Public Use
  Company Number: IT-GENENTECH-295201

PATIENT

DRUGS (8)
  1. BEVACIZUMAB [Suspect]
     Indication: COLORECTAL CANCER METASTATIC
     Dosage: 5 MG/KG, UNK
     Route: 065
  2. CAPECITABINE [Suspect]
     Indication: COLORECTAL CANCER METASTATIC
     Dosage: 1750 MG/M2, UNK
     Route: 048
  3. LEUCOVORIN CALCIUM [Suspect]
     Indication: COLORECTAL CANCER METASTATIC
     Dosage: 200 MG/M2, UNK
     Route: 065
  4. OXALIPLATIN [Suspect]
     Indication: COLORECTAL CANCER METASTATIC
     Dosage: 70 MG/M2, UNK
     Route: 065
  5. FLUOROURACIL [Suspect]
     Indication: COLORECTAL CANCER METASTATIC
     Dosage: 400 MG/M2, UNK
     Route: 042
  6. IRINOTECAN HCL [Suspect]
     Indication: COLORECTAL CANCER METASTATIC
     Dosage: 180 MG/M2, UNK
     Route: 065
  7. CETUXIMAB [Suspect]
     Indication: COLORECTAL CANCER METASTATIC
     Dosage: 400 MG/M2, UNK
     Route: 065
  8. DEXAMETHASONE TAB [Concomitant]
     Indication: DRUG USE FOR UNKNOWN INDICATION

REACTIONS (18)
  - ANAEMIA [None]
  - CEREBROVASCULAR ACCIDENT [None]
  - DIARRHOEA [None]
  - EPISTAXIS [None]
  - FATIGUE [None]
  - FEBRILE NEUTROPENIA [None]
  - GASTROINTESTINAL FISTULA [None]
  - GASTROINTESTINAL HAEMORRHAGE [None]
  - GASTROINTESTINAL PERFORATION [None]
  - HAEMORRHAGE [None]
  - HEPATOTOXICITY [None]
  - HYPERTENSION [None]
  - LEUKOPENIA [None]
  - NEUTROPENIA [None]
  - PELVIC ABSCESS [None]
  - PULMONARY EMBOLISM [None]
  - STOMATITIS [None]
  - THROMBOCYTOPENIA [None]
